FAERS Safety Report 21098167 (Version 1)
Quarter: 2022Q3

REPORT INFORMATION
  Report Type: Other
  Country: ES (occurrence: None)
  Receive Date: 20220719
  Receipt Date: 20220719
  Transmission Date: 20221026
  Serious: Yes (Hospitalization, Other)
  Sender: FDA-Public Use
  Company Number: ES-ROCHE-3138832

PATIENT
  Age: 77 Year
  Sex: Male

DRUGS (13)
  1. VEMURAFENIB [Suspect]
     Active Substance: VEMURAFENIB
     Indication: Erdheim-Chester disease
     Route: 065
     Dates: start: 201801, end: 201902
  2. PREDNISONE [Concomitant]
     Active Substance: PREDNISONE
     Indication: Haemophagocytic lymphohistiocytosis
     Dosage: HIGH DOSE
  3. CYCLOSPORINE [Concomitant]
     Active Substance: CYCLOSPORINE
     Indication: Haemophagocytic lymphohistiocytosis
  4. ANAKINRA [Concomitant]
     Active Substance: ANAKINRA
     Indication: Erdheim-Chester disease
  5. FUROSEMIDE [Concomitant]
     Active Substance: FUROSEMIDE
  6. ENALAPRIL [Concomitant]
     Active Substance: ENALAPRIL
  7. NEBIVOLOL [Concomitant]
     Active Substance: NEBIVOLOL
  8. PREDNISONE [Concomitant]
     Active Substance: PREDNISONE
  9. ALENDRONATE [Concomitant]
     Active Substance: ALENDRONATE SODIUM
  10. CALCIUM CARBONATE [Concomitant]
     Active Substance: CALCIUM CARBONATE
     Dosage: DAILY
  11. CHOLECALCIFEROL [Concomitant]
     Active Substance: CHOLECALCIFEROL
     Dosage: DAILY
  12. OMEPRAZOLE [Concomitant]
     Active Substance: OMEPRAZOLE
     Indication: Chronic obstructive pulmonary disease
  13. MIRTAZAPINE [Concomitant]
     Active Substance: MIRTAZAPINE
     Indication: Chronic obstructive pulmonary disease

REACTIONS (2)
  - Cardiac failure acute [Unknown]
  - Cardiotoxicity [Unknown]
